FAERS Safety Report 8571014-5 (Version None)
Quarter: 2012Q3

REPORT INFORMATION
  Report Type: 
  Country: None (occurrence: None)
  Receive Date: 20120806
  Receipt Date: 20120723
  Transmission Date: 20120928
  Serious: Yes (Other)
  Sender: FDA-Public Use
  Company Number: AR-AMGEN-ARGSP2012047011

PATIENT
  Sex: Female

DRUGS (2)
  1. LEFLUNOMIDE [Concomitant]
     Dosage: UNK
  2. ENBREL [Suspect]
     Indication: RHEUMATOID ARTHRITIS
     Dosage: 50 MG, WEEKLY
     Route: 058
     Dates: start: 20080603, end: 20120601

REACTIONS (3)
  - TOXICITY TO VARIOUS AGENTS [None]
  - VASCULITIS [None]
  - VOMITING [None]
